FAERS Safety Report 24540581 (Version 1)
Quarter: 2024Q4

REPORT INFORMATION
  Report Type: Spontaneous
  Country: GB (occurrence: GB)
  Receive Date: 20241023
  Receipt Date: 20241023
  Transmission Date: 20250115
  Serious: Yes (Other)
  Sender: SANDOZ
  Company Number: GB-NOVPHSZ-PHHY2019GB134117

PATIENT
  Age: 43 Year
  Sex: Female
  Weight: 68 kg

DRUGS (3)
  1. DOXYCYCLINE HYCLATE [Suspect]
     Active Substance: DOXYCYCLINE HYCLATE
     Indication: Sinusitis
     Dosage: 100 MG, UNK
     Route: 048
     Dates: start: 20190511, end: 20190512
  2. ASPIRIN [Concomitant]
     Active Substance: ASPIRIN
     Indication: Product used for unknown indication
     Dosage: UNK
     Route: 065
  3. FERROUS FUMARATE [Concomitant]
     Active Substance: FERROUS FUMARATE
     Indication: Product used for unknown indication
     Route: 065

REACTIONS (6)
  - Feeling hot [Recovered/Resolved with Sequelae]
  - Chest pain [Recovered/Resolved with Sequelae]
  - Oral mucosal blistering [Recovered/Resolved with Sequelae]
  - Dizziness [Recovered/Resolved with Sequelae]
  - Oesophageal pain [Unknown]
  - Dyspepsia [Recovered/Resolved with Sequelae]

NARRATIVE: CASE EVENT DATE: 20190511
